FAERS Safety Report 25331450 (Version 1)
Quarter: 2025Q2

REPORT INFORMATION
  Report Type: Spontaneous
  Country: BR (occurrence: BR)
  Receive Date: 20250519
  Receipt Date: 20250519
  Transmission Date: 20250717
  Serious: Yes (Other)
  Sender: TAKEDA
  Company Number: BR-LUNDBECK-DKLU4014467

PATIENT
  Age: 32 Year
  Sex: Female

DRUGS (2)
  1. VORTIOXETINE [Suspect]
     Active Substance: VORTIOXETINE
     Indication: Product used for unknown indication
  2. VORTIOXETINE [Suspect]
     Active Substance: VORTIOXETINE

REACTIONS (1)
  - Dystonia [Unknown]
